FAERS Safety Report 7794920-8 (Version None)
Quarter: 2011Q4

REPORT INFORMATION
  Report Type: 
  Country: None (occurrence: None)
  Receive Date: 20111004
  Receipt Date: 20110930
  Transmission Date: 20120403
  Serious: Yes (Other)
  Sender: FDA-Public Use
  Company Number: JP-PFIZER INC-2011235218

PATIENT
  Sex: Male

DRUGS (1)
  1. AMLODIPINE [Suspect]

REACTIONS (1)
  - PNEUMONIA [None]
